FAERS Safety Report 15545278 (Version 1)
Quarter: 2018Q4

REPORT INFORMATION
  Report Type: Spontaneous
  Country: US (occurrence: US)
  Receive Date: 20181024
  Receipt Date: 20181024
  Transmission Date: 20190205
  Serious: No
  Sender: FDA-Public Use
  Company Number: US-PFIZER INC-2018428531

PATIENT
  Age: 63 Year
  Sex: Male
  Weight: 148.78 kg

DRUGS (1)
  1. GABAPENTIN. [Suspect]
     Active Substance: GABAPENTIN
     Dosage: 800 MG, UNK (2-3 TIMES A DAY)
     Route: 048

REACTIONS (1)
  - Drug ineffective [Unknown]
